FAERS Safety Report 5588854-7 (Version None)
Quarter: 2008Q1

REPORT INFORMATION
  Report Type: 
  Country: None (occurrence: None)
  Receive Date: 20080111
  Receipt Date: 20080104
  Transmission Date: 20080703
  Serious: Yes (Hospitalization)
  Sender: FDA-Public Use
  Company Number: US-GENENTECH-217405

PATIENT
  Sex: Male
  Weight: 82.54 kg

DRUGS (8)
  1. RITUXIMAB [Suspect]
     Indication: MULTIPLE SCLEROSIS
     Dosage: 1000 MG, DAYS 1+15
     Route: 042
     Dates: start: 20040713, end: 20050627
  2. RITUXIMAB [Suspect]
     Dosage: 1000 MG, DAYS 1+15
     Route: 042
     Dates: start: 20041228, end: 20050110
  3. RITUXIMAB [Suspect]
     Dosage: 1000 MG, DAYS 1+15
     Route: 042
     Dates: start: 20050613, end: 20050627
  4. FOSAMAX [Concomitant]
     Indication: DRUG USE FOR UNKNOWN INDICATION
     Dosage: 70 G, 1/WEEK
  5. ASCORBIC ACID [Concomitant]
     Indication: DRUG USE FOR UNKNOWN INDICATION
  6. VITAMIN E [Concomitant]
     Indication: DRUG USE FOR UNKNOWN INDICATION
  7. METFORMIN HCL [Concomitant]
     Indication: DRUG USE FOR UNKNOWN INDICATION
  8. ACTOS [Concomitant]
     Indication: DRUG USE FOR UNKNOWN INDICATION

REACTIONS (10)
  - ABASIA [None]
  - ANAEMIA [None]
  - ASPARTATE AMINOTRANSFERASE INCREASED [None]
  - BACILLUS INFECTION [None]
  - BLOOD CULTURE POSITIVE [None]
  - BLOOD SODIUM DECREASED [None]
  - ENCEPHALITIS [None]
  - MENINGITIS [None]
  - PROSTATITIS [None]
  - VISION BLURRED [None]
